FAERS Safety Report 11294372 (Version 1)
Quarter: 2015Q3

REPORT INFORMATION
  Report Type: Spontaneous
  Country: US (occurrence: US)
  Receive Date: 20150722
  Receipt Date: 20150722
  Transmission Date: 20151125
  Serious: No
  Sender: FDA-Public Use
  Company Number: US-ELI_LILLY_AND_COMPANY-US200806004839

PATIENT
  Sex: Female

DRUGS (6)
  1. TEGRETOL [Concomitant]
     Active Substance: CARBAMAZEPINE
     Indication: NERVOUSNESS
     Dosage: UNK, EACH MORNING
  2. TUMS [Concomitant]
     Active Substance: CALCIUM CARBONATE
     Dosage: UNK, 3/D
  3. ATENOLOL. [Concomitant]
     Active Substance: ATENOLOL
     Indication: HYPERTENSION
     Dosage: UNK, EACH MORNING
  4. EVISTA [Suspect]
     Active Substance: RALOXIFENE HYDROCHLORIDE
     Indication: PROPHYLAXIS
     Dosage: 60 MG, EACH MORNING
     Dates: start: 1988
  5. VITAMIN D [Concomitant]
     Active Substance: CHOLECALCIFEROL
     Dosage: UNK, EACH MORNING
     Route: 048
  6. POTASSIUM [Concomitant]
     Active Substance: POTASSIUM
     Dosage: UNK, EACH MORNING
     Route: 048

REACTIONS (2)
  - Bone density decreased [Unknown]
  - Drug ineffective [Unknown]
